FAERS Safety Report 6695387-3 (Version None)
Quarter: 2010Q2

REPORT INFORMATION
  Report Type: 
  Country: None (occurrence: None)
  Receive Date: 20100423
  Receipt Date: 20100423
  Transmission Date: 20101027
  Serious: Yes (Hospitalization)
  Sender: FDA-Public Use
  Company Number: None

PATIENT
  Age: 79 Year
  Weight: 82.4 kg

DRUGS (16)
  1. COUMADIN [Suspect]
     Indication: ATRIAL FIBRILLATION
     Dosage: 2 MG T TH F SS PO CHRONIC 4 MG MW PO
     Route: 048
  2. GEMFIBROZIL [Concomitant]
  3. PREDNISONE [Concomitant]
  4. MESALAMINE [Concomitant]
  5. M.V.I. [Concomitant]
  6. DIGOXIN [Concomitant]
  7. POTASSIUM CHLORIDE [Concomitant]
  8. MAGOX [Concomitant]
  9. PROCHLORPERAZINE [Concomitant]
  10. LOMOTIL [Concomitant]
  11. SENOKOT [Concomitant]
  12. ACETAMINOPHEN AND HYDROCODONE BITARTRATE [Concomitant]
  13. ASCORBIC ACID [Concomitant]
  14. VIT D3 [Concomitant]
  15. VIT B12 [Concomitant]
  16. LEVAQUIN [Concomitant]

REACTIONS (4)
  - DIARRHOEA [None]
  - GASTROINTESTINAL HAEMORRHAGE [None]
  - HAEMATOCRIT DECREASED [None]
  - HYPOTENSION [None]
